FAERS Safety Report 6370704-2 (Version None)
Quarter: 2009Q3

REPORT INFORMATION
  Report Type: 
  Country: None (occurrence: None)
  Receive Date: 20090923
  Receipt Date: 20070520
  Transmission Date: 20100115
  Serious: Yes (Hospitalization, Other)
  Sender: FDA-Public Use
  Company Number: US-ASTRAZENECA-2006UW24997

PATIENT
  Age: 51 Year
  Sex: Female
  Weight: 74.8 kg

DRUGS (11)
  1. SEROQUEL [Suspect]
     Indication: NERVOUS SYSTEM DISORDER
     Route: 048
     Dates: start: 20010101
  2. SEROQUEL [Suspect]
     Indication: PARANOIA
     Route: 048
     Dates: start: 20010101
  3. SEROQUEL [Suspect]
     Dosage: 100-600 MG SUBSEQUENTLY INCREASED
     Route: 048
     Dates: start: 20010131
  4. SEROQUEL [Suspect]
     Dosage: 100-600 MG SUBSEQUENTLY INCREASED
     Route: 048
     Dates: start: 20010131
  5. GLUCOPHAGE XR [Concomitant]
     Route: 048
     Dates: start: 20010208
  6. NORVASC [Concomitant]
     Route: 048
     Dates: start: 20010208
  7. GLIPIZIDE [Concomitant]
     Dates: start: 20010208
  8. GLYBURIDE [Concomitant]
     Dates: start: 20010208
  9. REMERON [Concomitant]
     Dates: start: 20010208
  10. PAXIL [Concomitant]
     Dates: start: 20010208
  11. COZAAR [Concomitant]
     Route: 048
     Dates: start: 20030225

REACTIONS (3)
  - DIABETES MELLITUS [None]
  - PANCREATITIS [None]
  - SUICIDAL IDEATION [None]
